FAERS Safety Report 19514809 (Version 3)
Quarter: 2021Q3

REPORT INFORMATION
  Report Type: Report from Study
  Country: US (occurrence: US)
  Receive Date: 20210709
  Receipt Date: 20210904
  Transmission Date: 20211014
  Serious: No
  Sender: FDA-Public Use
  Company Number: NVSC2021US141211

PATIENT
  Sex: Female

DRUGS (1)
  1. ENTRESTO [Suspect]
     Active Substance: SACUBITRIL\VALSARTAN
     Indication: PRODUCT USED FOR UNKNOWN INDICATION
     Dosage: 1 DF, BID (24/26 MG)
     Route: 048
     Dates: start: 202010

REACTIONS (8)
  - Dizziness [Not Recovered/Not Resolved]
  - Gait inability [Unknown]
  - Decreased activity [Unknown]
  - Weight decreased [Unknown]
  - Fatigue [Unknown]
  - Plantar fasciitis [Unknown]
  - Cough [Not Recovered/Not Resolved]
  - Weight increased [Unknown]
